FAERS Safety Report 21900336 (Version 1)
Quarter: 2023Q1

REPORT INFORMATION
  Report Type: Report from Study
  Country: CA (occurrence: CA)
  Receive Date: 20230123
  Receipt Date: 20230123
  Transmission Date: 20230418
  Serious: Yes (Death)
  Sender: FDA-Public Use
  Company Number: CA-MYLANLABS-2022M1029311

PATIENT
  Age: 61 Year
  Sex: Male

DRUGS (2)
  1. HULIO [Suspect]
     Active Substance: ADALIMUMAB-FKJP
     Indication: Hidradenitis
     Dosage: 80 MILLIGRAM, QW
     Route: 058
  2. HULIO [Suspect]
     Active Substance: ADALIMUMAB-FKJP
     Dosage: UNK (WEEKLY)
     Route: 058
     Dates: start: 20220606

REACTIONS (2)
  - Death [Fatal]
  - Off label use [Unknown]
